FAERS Safety Report 4706211-X (Version None)
Quarter: 2005Q2

REPORT INFORMATION
  Report Type: 
  Country: None (occurrence: None)
  Receive Date: 20050627
  Receipt Date: 20050413
  Transmission Date: 20051028
  Serious: No
  Sender: FDA-Public Use
  Company Number: IND-AE-05-SAN-017

PATIENT
  Age: 76 Year
  Sex: Male
  Weight: 99.7913 kg

DRUGS (14)
  1. SANCTURA [Suspect]
     Indication: HYPERTONIC BLADDER
  2. OXYTROL [Suspect]
     Indication: HYPERTONIC BLADDER
  3. DETROL [Suspect]
     Indication: HYPERTONIC BLADDER
  4. GARLIC [Concomitant]
  5. GLUCOSAMINE [Concomitant]
  6. ASPIRIN [Concomitant]
  7. FUROSEMIDE [Concomitant]
  8. TELMISARTAN [Concomitant]
  9. FINASTERIDE [Concomitant]
  10. OMEPRAZOLE [Concomitant]
  11. MULTI-VITAMINS [Concomitant]
  12. BECOSYM FORTE [Concomitant]
  13. ASCORBIC ACID [Concomitant]
  14. TOCOPHEROL CONCENTRATE CAP [Concomitant]

REACTIONS (2)
  - DRUG INEFFECTIVE [None]
  - URINARY RETENTION [None]
